FAERS Safety Report 25534544 (Version 1)
Quarter: 2025Q3

REPORT INFORMATION
  Report Type: Spontaneous
  Country: US (occurrence: None)
  Receive Date: 20250708
  Receipt Date: 20250708
  Transmission Date: 20251021
  Serious: No
  Sender: FDA-CTU
  Company Number: None

PATIENT
  Sex: Female

DRUGS (9)
  1. ICATIBANT ACETATE [Suspect]
     Active Substance: ICATIBANT ACETATE
     Indication: Immune system disorder
     Route: 058
     Dates: start: 20220307
  2. FIRAZYR SYR [Concomitant]
  3. HEPARIN L/L FLUSH SYR (5ML) [Concomitant]
  4. RASUVO [Concomitant]
     Active Substance: METHOTREXATE SODIUM
  5. ICATIBANT ACETATE [Concomitant]
     Active Substance: ICATIBANT ACETATE
  6. DUPIXENT [Concomitant]
     Active Substance: DUPILUMAB
  7. NORMAL SALINE FLUSH (5ML) [Concomitant]
  8. SOD CHLOR POS STERILE F (10ML) [Concomitant]
  9. BERINERT [Suspect]
     Active Substance: HUMAN C1-ESTERASE INHIBITOR
     Indication: Immune system disorder

REACTIONS (1)
  - Condition aggravated [None]
